FAERS Safety Report 8989606 (Version 2)
Quarter: 2013Q2

REPORT INFORMATION
  Report Type: Spontaneous
  Country: US (occurrence: US)
  Receive Date: 20121228
  Receipt Date: 20130510
  Transmission Date: 20140414
  Serious: No
  Sender: FDA-Public Use
  Company Number: US-BIOGENIDEC-2012BI062274

PATIENT
  Age: 53 Year
  Sex: Female

DRUGS (3)
  1. AVONEX [Suspect]
     Indication: MULTIPLE SCLEROSIS
     Route: 030
     Dates: start: 20120625, end: 20120930
  2. AVONEX [Suspect]
     Indication: MULTIPLE SCLEROSIS
     Route: 030
     Dates: start: 20121113
  3. FLU SHOT (NOS) [Concomitant]
     Indication: ANTIVIRAL PROPHYLAXIS
     Dates: start: 201212

REACTIONS (9)
  - Gait disturbance [Not Recovered/Not Resolved]
  - Influenza [Unknown]
  - Visual impairment [Not Recovered/Not Resolved]
  - Bladder pain [Recovered/Resolved]
  - Frustration [Recovered/Resolved]
  - Multiple sclerosis relapse [Unknown]
  - Diarrhoea [Not Recovered/Not Resolved]
  - Malaise [Not Recovered/Not Resolved]
  - Pain [Recovered/Resolved]
